FAERS Safety Report 4725838-2 (Version None)
Quarter: 2005Q3

REPORT INFORMATION
  Report Type: 
  Country: None (occurrence: None)
  Receive Date: 20050722
  Receipt Date: 20050722
  Transmission Date: 20060218
  Serious: Yes (Other)
  Sender: FDA-Public Use
  Company Number: None

PATIENT
  Age: 49 Year
  Sex: Male
  Weight: 93 kg

DRUGS (7)
  1. RISPERDAL [Suspect]
     Indication: SCHIZOAFFECTIVE DISORDER
     Dosage: 3 MG Q 12 PO
     Route: 048
     Dates: start: 20050523, end: 20050705
  2. DIVALPROEX SODIUM [Concomitant]
  3. INSULIN [Concomitant]
  4. DIPHENHYDRAMINE HCL [Concomitant]
  5. FLUPHERAZINE [Concomitant]
  6. HYDROXYZINE [Concomitant]
  7. ZEPRASIDONE [Concomitant]

REACTIONS (2)
  - COGWHEEL RIGIDITY [None]
  - TREMOR [None]
